FAERS Safety Report 25574076 (Version 2)
Quarter: 2025Q3

REPORT INFORMATION
  Report Type: Spontaneous
  Country: US (occurrence: US)
  Receive Date: 20250717
  Receipt Date: 20250818
  Transmission Date: 20251021
  Serious: No
  Sender: PFIZER
  Company Number: US-PFIZER INC-202500094748

PATIENT
  Age: 24 Year
  Sex: Male
  Weight: 69.8 kg

DRUGS (7)
  1. ADCETRIS [Suspect]
     Active Substance: BRENTUXIMAB VEDOTIN
     Indication: Peripheral T-cell lymphoma unspecified
     Dosage: 125.6 MG, EVERY 3 WEEKS
  2. ADCETRIS [Suspect]
     Active Substance: BRENTUXIMAB VEDOTIN
     Route: 042
  3. ADCETRIS [Suspect]
     Active Substance: BRENTUXIMAB VEDOTIN
     Dosage: 134 MG, EVERY 3 WEEKS
     Route: 042
  4. ADRIAMYCIN [Concomitant]
     Active Substance: DOXORUBICIN HYDROCHLORIDE
     Indication: Peripheral T-cell lymphoma unspecified
  5. CINVANTI [Concomitant]
     Active Substance: APREPITANT
     Indication: Peripheral T-cell lymphoma unspecified
  6. PREDNISONE [Concomitant]
     Active Substance: PREDNISONE
     Indication: Peripheral T-cell lymphoma unspecified
  7. SUSTOL [Concomitant]
     Active Substance: GRANISETRON
     Indication: Peripheral T-cell lymphoma unspecified

REACTIONS (2)
  - Weight increased [Not Recovered/Not Resolved]
  - Off label use [Unknown]
